FAERS Safety Report 22168441 (Version 1)
Quarter: 2023Q2

REPORT INFORMATION
  Report Type: Spontaneous
  Country: US (occurrence: US)
  Receive Date: 20230403
  Receipt Date: 20230403
  Transmission Date: 20230722
  Serious: Yes (Other)
  Sender: FDA-Public Use
  Company Number: US-ABBVIE-4713330

PATIENT
  Age: 36 Year
  Sex: Male
  Weight: 89.357 kg

DRUGS (1)
  1. HUMIRA [Suspect]
     Active Substance: ADALIMUMAB
     Indication: Product used for unknown indication
     Route: 058
     Dates: start: 202207, end: 20230210

REACTIONS (2)
  - Gastrointestinal haemorrhage [Recovering/Resolving]
  - Poor quality product administered [Unknown]

NARRATIVE: CASE EVENT DATE: 20230210
